FAERS Safety Report 16740771 (Version 3)
Quarter: 2019Q3

REPORT INFORMATION
  Report Type: Spontaneous
  Country: US (occurrence: US)
  Receive Date: 20190826
  Receipt Date: 20190916
  Transmission Date: 20191005
  Serious: No
  Sender: FDA-Public Use
  Company Number: US-PFIZER INC-2017273766

PATIENT
  Age: 63 Year
  Sex: Female
  Weight: 77 kg

DRUGS (6)
  1. IBRANCE [Suspect]
     Active Substance: PALBOCICLIB
     Indication: BREAST CANCER METASTATIC
     Dosage: 125 MG, CYCLIC (FOR 21 DAYS, OFF 7 DAYS)
     Route: 048
     Dates: start: 201509, end: 201908
  2. FASLODEX [Concomitant]
     Active Substance: FULVESTRANT
     Indication: NEOPLASM MALIGNANT
     Dosage: UNK UNK, MONTHLY (2 SHOTS EVERY MONTH IN REAR END,TWO SHOTS SAME TIME, ONCE PER MONTH)
     Dates: start: 201509, end: 201908
  3. VALIUM [Concomitant]
     Active Substance: DIAZEPAM
     Dosage: UNK
  4. CARBIDOPA AND LEVODOPA [Concomitant]
     Active Substance: CARBIDOPA\LEVODOPA
     Indication: NERVOUS SYSTEM DISORDER
     Dosage: UNK, 1X/DAY [CARBIDOPA: 25MG/ LEVIDOPA: 100MG]
     Route: 048
     Dates: start: 201907, end: 201907
  5. AROMASIN [Concomitant]
     Active Substance: EXEMESTANE
     Dosage: UNK, 2X/DAY
  6. XGEVA [Concomitant]
     Active Substance: DENOSUMAB
     Indication: BONE DISORDER
     Dosage: UNK UNK, EVERY 3 MONTHS (ONE SHOT EVERY THREE MONTHS)
     Dates: start: 2016

REACTIONS (1)
  - Neoplasm progression [Unknown]

NARRATIVE: CASE EVENT DATE: 201908
